FAERS Safety Report 6149737-7 (Version None)
Quarter: 2009Q2

REPORT INFORMATION
  Report Type: 
  Country: None (occurrence: None)
  Receive Date: 20090407
  Receipt Date: 20090407
  Transmission Date: 20091009
  Serious: Yes (Hospitalization)
  Sender: FDA-Public Use
  Company Number: None

PATIENT
  Age: 56 Year
  Sex: Female
  Weight: 63.05 kg

DRUGS (1)
  1. HYDROMORPHONE HCL [Suspect]
     Indication: PAIN
     Dosage: 1 MG Q4H-PRN IV
     Route: 042
     Dates: start: 20090307, end: 20090307

REACTIONS (3)
  - RESPIRATORY RATE INCREASED [None]
  - UNEVALUABLE EVENT [None]
  - URINE OUTPUT DECREASED [None]
